FAERS Safety Report 24818934 (Version 1)
Quarter: 2025Q1

REPORT INFORMATION
  Report Type: Spontaneous
  Country: US (occurrence: None)
  Receive Date: 20250107
  Receipt Date: 20250107
  Transmission Date: 20250408
  Serious: No
  Sender: FDA-CTU
  Company Number: None

PATIENT

DRUGS (1)
  1. PRAMIPEXOLE [Suspect]
     Active Substance: PRAMIPEXOLE

REACTIONS (8)
  - Feeling abnormal [None]
  - Multiple sclerosis relapse [None]
  - Restless legs syndrome [None]
  - Pain in extremity [None]
  - Pain in extremity [None]
  - Muscle spasms [None]
  - Muscle spasms [None]
  - Headache [None]
